FAERS Safety Report 4836354-1 (Version None)
Quarter: 2005Q4

REPORT INFORMATION
  Report Type: 
  Country: None (occurrence: None)
  Receive Date: 20051123
  Receipt Date: 20051108
  Transmission Date: 20060501
  Serious: Yes (Hospitalization)
  Sender: FDA-Public Use
  Company Number: JP-ROCHE-423946

PATIENT
  Age: 65 Year
  Sex: Female

DRUGS (14)
  1. PANALDINE [Suspect]
     Indication: THROMBOSIS PROPHYLAXIS
     Route: 048
     Dates: start: 20050826, end: 20051005
  2. MEVALOTIN [Concomitant]
     Route: 048
  3. NORVASC [Concomitant]
     Route: 048
  4. PURSENNID [Concomitant]
     Route: 048
  5. AMOBAN [Concomitant]
     Route: 048
  6. LAXOBERON [Concomitant]
     Route: 048
  7. PLETAL [Concomitant]
     Route: 048
  8. GLYBURIDE [Concomitant]
     Route: 048
  9. ASPIRIN [Concomitant]
     Route: 048
  10. WARFARIN [Concomitant]
     Route: 048
  11. DIGOSIN [Concomitant]
     Route: 048
  12. SHAKUYAKU-KANZO-TO [Concomitant]
     Route: 048
  13. RISUMIC [Concomitant]
     Route: 048
  14. SODIUM BICARBONATE [Concomitant]

REACTIONS (2)
  - BONE MARROW FAILURE [None]
  - LEUKOPENIA [None]
